FAERS Safety Report 6553883-3 (Version None)
Quarter: 2010Q1

REPORT INFORMATION
  Report Type: 
  Country: None (occurrence: None)
  Receive Date: 20100127
  Receipt Date: 20100118
  Transmission Date: 20100710
  Serious: Yes (Death)
  Sender: FDA-Public Use
  Company Number: GB-TEVA-221751ISR

PATIENT

DRUGS (1)
  1. PREDNISOLONE [Suspect]
     Indication: INFANTILE SPASMS
     Route: 048

REACTIONS (1)
  - STAPHYLOCOCCAL SEPSIS [None]
